FAERS Safety Report 9202642 (Version 3)
Quarter: 2014Q1

REPORT INFORMATION
  Report Type: Spontaneous
  Country: US (occurrence: US)
  Receive Date: 20130401
  Receipt Date: 20140203
  Transmission Date: 20141002
  Serious: Yes (Other)
  Sender: FDA-Public Use
  Company Number: US-BAYER-2013-039204

PATIENT
  Age: 18 Year
  Sex: Female

DRUGS (8)
  1. YAZ [Suspect]
     Dosage: UNK
     Dates: start: 2009
  2. YASMIN [Suspect]
     Dosage: UNK
     Dates: start: 2009
  3. OCELLA [Suspect]
     Dosage: UNK
     Dates: start: 2009
  4. CYMBALTA [Concomitant]
  5. CYMBALTA [Concomitant]
     Dosage: 30 MG, UNK
     Dates: start: 20091209
  6. TRAZODONE [Concomitant]
     Dosage: 150 MG, UNK
     Dates: start: 20091117
  7. NAPROXEN [Concomitant]
  8. CITALOPRAM [Concomitant]
     Dosage: 20 MG, UNK
     Dates: start: 20091117

REACTIONS (8)
  - Gallbladder disorder [None]
  - Cholecystitis chronic [None]
  - Pain [None]
  - Injury [None]
  - General physical health deterioration [None]
  - Emotional distress [None]
  - Anxiety [None]
  - Pain [None]
